FAERS Safety Report 4558288-2 (Version None)
Quarter: 2005Q1

REPORT INFORMATION
  Report Type: 
  Country: None (occurrence: None)
  Receive Date: 20050121
  Receipt Date: 20050111
  Transmission Date: 20050727
  Serious: Yes (Death, Life-Threatening)
  Sender: FDA-Public Use
  Company Number: GB-JNJFOC-20050102810

PATIENT
  Age: 50 Year
  Sex: Female
  Weight: 79 kg

DRUGS (4)
  1. MICRONOR [Suspect]
     Indication: VAGINAL HAEMORRHAGE
     Route: 049
  2. MICRONOR [Suspect]
     Indication: ENDOMETRIAL HYPERPLASIA
     Route: 049
  3. FERROUS SULFATE TAB [Concomitant]
  4. GLUCOSAMINE [Concomitant]

REACTIONS (2)
  - CARDIAC ARREST [None]
  - PULMONARY EMBOLISM [None]
